FAERS Safety Report 4721346-3 (Version None)
Quarter: 2005Q3

REPORT INFORMATION
  Report Type: 
  Country: None (occurrence: None)
  Receive Date: 20050721
  Receipt Date: 20040708
  Transmission Date: 20060218
  Serious: No
  Sender: FDA-Public Use
  Company Number: US-BRISTOL-MYERS SQUIBB COMPANY-12635447

PATIENT
  Age: 81 Year
  Sex: Male

DRUGS (2)
  1. COUMADIN [Suspect]
     Indication: HEART RATE IRREGULAR
     Dosage: 5 MG ONCE A DAY ALTERNATING WITH 7.5 MG ONCE A DAY.
     Route: 048
  2. PLAVIX [Suspect]
     Indication: HEART RATE IRREGULAR
     Route: 048

REACTIONS (1)
  - FATIGUE [None]
